FAERS Safety Report 9815512 (Version 3)
Quarter: 2014Q3

REPORT INFORMATION
  Report Type: Spontaneous
  Country: US (occurrence: US)
  Receive Date: 20140114
  Receipt Date: 20140815
  Transmission Date: 20150326
  Serious: Yes (Hospitalization)
  Sender: FDA-Public Use
  Company Number: US-009507513-1401USA004182

PATIENT
  Sex: Female

DRUGS (1)
  1. NUVARING [Suspect]
     Active Substance: ETHINYL ESTRADIOL\ETONOGESTREL
     Indication: PRODUCT USED FOR UNKNOWN INDICATION
     Dosage: 0.12 MG - 0.015 MG
     Route: 067
     Dates: end: 20120308

REACTIONS (10)
  - Intracranial venous sinus thrombosis [Unknown]
  - Gastroenteritis [Unknown]
  - Dehydration [Unknown]
  - Papilloma viral infection [Unknown]
  - Depression [Unknown]
  - Asthma [Unknown]
  - Exophthalmos [Unknown]
  - Culture urine positive [Unknown]
  - Cerebral thrombosis [Unknown]
  - Embolism venous [Unknown]

NARRATIVE: CASE EVENT DATE: 20120201
